FAERS Safety Report 24314908 (Version 1)
Quarter: 2024Q3

REPORT INFORMATION
  Report Type: Spontaneous
  Country: JP (occurrence: JP)
  Receive Date: 20240913
  Receipt Date: 20240913
  Transmission Date: 20241017
  Serious: Yes (Life-Threatening)
  Sender: ROCHE
  Company Number: JP-CHUGAI-2024031131

PATIENT
  Age: 76 Year
  Sex: Female
  Weight: 58.9 kg

DRUGS (13)
  1. TECENTRIQ [Suspect]
     Active Substance: ATEZOLIZUMAB
     Indication: Hepatocellular carcinoma
     Dosage: 1200 MILLIGRAM, ONCE/3WEEKS
     Route: 042
     Dates: start: 20240530, end: 20240627
  2. AVASTIN [Suspect]
     Active Substance: BEVACIZUMAB
     Indication: Hepatocellular carcinoma
     Dosage: 847.5 MILLIGRAM, ONCE/3WEEKS
     Route: 042
     Dates: start: 20240530, end: 20240627
  3. CALBLOCK [AZELNIDIPINE] [Concomitant]
     Dosage: UNK
     Route: 065
  4. ENTRESTO [Concomitant]
     Active Substance: SACUBITRIL\VALSARTAN
     Dosage: UNK
     Route: 065
  5. REBAMIPIDE [Concomitant]
     Active Substance: REBAMIPIDE
     Dosage: UNK
     Route: 065
  6. URSODIOL [Concomitant]
     Active Substance: URSODIOL
     Dosage: UNK
     Route: 065
  7. METHYLCOBALAMIN [Concomitant]
     Active Substance: METHYLCOBALAMIN
     Dosage: UNK
     Route: 065
  8. ZINC ACETATE [Concomitant]
     Active Substance: ZINC ACETATE
     Dosage: UNK
     Route: 050
  9. LIVACT [ISOLEUCINE;LEUCINE;VALINE] [Concomitant]
     Dosage: UNK
     Route: 065
  10. LEVOCARNITINE HYDROCHLORIDE [Concomitant]
     Active Substance: LEVOCARNITINE HYDROCHLORIDE
     Dosage: UNK
     Route: 065
  11. BILASTINE [Concomitant]
     Active Substance: BILASTINE
     Dosage: UNK
     Route: 065
  12. AMINOLEBAN EN [ALANINE;ARGININE HYDROCHLORIDE;GLYCINE;ISOLEUCINE;METHI [Concomitant]
     Dosage: UNK
     Route: 050
  13. AMMONIUM GLYCYRRHIZATE\GLYCINE\RACEMETHIONINE [Concomitant]
     Active Substance: AMMONIUM GLYCYRRHIZATE\GLYCINE\RACEMETHIONINE
     Dosage: UNK
     Route: 065

REACTIONS (2)
  - Myocardial infarction [Recovering/Resolving]
  - Myocarditis [Recovering/Resolving]

NARRATIVE: CASE EVENT DATE: 20240708
